FAERS Safety Report 8158529-9 (Version None)
Quarter: 2012Q1

REPORT INFORMATION
  Report Type: 
  Country: None (occurrence: None)
  Receive Date: 20120223
  Receipt Date: 20120217
  Transmission Date: 20120608
  Serious: Yes (Hospitalization)
  Sender: FDA-Public Use
  Company Number: US-VERTEX PHARMACEUTICALS INC.-AE-2012-001559

PATIENT
  Age: 58 Year
  Sex: Male
  Weight: 95.3 kg

DRUGS (18)
  1. ZYPREXA [Concomitant]
     Route: 048
  2. ADVAIR DISKUS 100/50 [Concomitant]
  3. NEXIUM [Concomitant]
  4. VIAGRA [Concomitant]
     Route: 048
  5. METOPROLOL SUCCINATE [Concomitant]
  6. NORCO [Concomitant]
  7. DETROL [Concomitant]
  8. DIAZEPAM [Concomitant]
     Route: 048
  9. ASPIRIN [Concomitant]
  10. PEGASYS [Concomitant]
     Indication: HEPATITIS C
     Route: 058
     Dates: start: 20111004
  11. NITROGLYCERIN [Concomitant]
  12. CITALOPRAM HYDROBROMIDE [Concomitant]
     Route: 048
  13. INCIVEK [Suspect]
     Indication: HEPATITIS C
     Dates: start: 20111004
  14. RIBAVIRIN [Concomitant]
     Indication: HEPATITIS C
     Dates: start: 20111004
  15. CENTRUM [Concomitant]
     Route: 048
  16. LISINOPRIL [Concomitant]
  17. COMBIVENT [Concomitant]
  18. OXYCODONE HCL [Concomitant]
     Route: 048

REACTIONS (1)
  - ANAEMIA [None]
